FAERS Safety Report 19149821 (Version 1)
Quarter: 2021Q2

REPORT INFORMATION
  Report Type: Spontaneous
  Country: US (occurrence: US)
  Receive Date: 20210417
  Receipt Date: 20210417
  Transmission Date: 20210717
  Serious: No
  Sender: FDA-Public Use
  Company Number: US-IGSA-BIG0014065

PATIENT
  Age: 64 Year
  Sex: Female
  Weight: 109 kg

DRUGS (3)
  1. DIPHENHYDRAMINE. [Concomitant]
     Active Substance: DIPHENHYDRAMINE
     Indication: PREMEDICATION
     Dosage: 12.5 MILLIGRAM
     Dates: start: 20210401
  2. GAMUNEX?C [Suspect]
     Active Substance: HUMAN IMMUNOGLOBULIN G
     Indication: CHRONIC INFLAMMATORY DEMYELINATING POLYRADICULONEUROPATHY
     Dosage: UNK UNK, SINGLE
     Route: 042
     Dates: start: 20210401
  3. GAMUNEX?C [Suspect]
     Active Substance: HUMAN IMMUNOGLOBULIN G
     Dosage: 120 GRAM, Q.3WK.
     Route: 042
     Dates: start: 20180413

REACTIONS (3)
  - Pruritus [Unknown]
  - Urticaria [Unknown]
  - Skin irritation [Unknown]

NARRATIVE: CASE EVENT DATE: 20210401
